FAERS Safety Report 24291630 (Version 1)
Quarter: 2024Q3

REPORT INFORMATION
  Report Type: Spontaneous
  Country: US (occurrence: None)
  Receive Date: 20240906
  Receipt Date: 20240906
  Transmission Date: 20241017
  Serious: No
  Sender: DOMPE FARMACEUTICI
  Company Number: US-FARMAPROD-202309-2887

PATIENT
  Age: 70 Year
  Sex: Male

DRUGS (19)
  1. OXERVATE [Suspect]
     Active Substance: CENEGERMIN-BKBJ
     Indication: Neurotrophic keratopathy
     Route: 047
     Dates: start: 20230913
  2. OXERVATE [Suspect]
     Active Substance: CENEGERMIN-BKBJ
  3. HUMALOG [Concomitant]
     Active Substance: INSULIN LISPRO
     Dosage: KWIKPEN U-100
  4. LANTUS [Concomitant]
     Active Substance: INSULIN GLARGINE
     Dosage: SOLOSTAR
  5. LOSARTAN POTASSIUM [Concomitant]
     Active Substance: LOSARTAN POTASSIUM
  6. ACETAMINOPHEN\HYDROCODONE [Concomitant]
     Active Substance: ACETAMINOPHEN\HYDROCODONE
  7. GLIPIZIDE [Concomitant]
     Active Substance: GLIPIZIDE
  8. GABAPENTIN [Concomitant]
     Active Substance: GABAPENTIN
  9. JARDIANCE [Concomitant]
     Active Substance: EMPAGLIFLOZIN
  10. ZYRTEC [Concomitant]
     Active Substance: CETIRIZINE HYDROCHLORIDE
  11. SAXAGLIPTIN HYDROCHLORIDE [Concomitant]
     Active Substance: SAXAGLIPTIN HYDROCHLORIDE
  12. ROSUVASTATIN CALCIUM [Concomitant]
     Active Substance: ROSUVASTATIN CALCIUM
  13. LIDOCAINE [Concomitant]
     Active Substance: LIDOCAINE
     Dosage: ADHERENT PATCH
  14. OMEPRAZOLE [Concomitant]
     Active Substance: OMEPRAZOLE
  15. NAPROXEN [Concomitant]
     Active Substance: NAPROXEN
  16. METFORMIN HYDROCHLORIDE [Concomitant]
     Active Substance: METFORMIN HYDROCHLORIDE
  17. LABETALOL HYDROCHLORIDE [Concomitant]
     Active Substance: LABETALOL\LABETALOL HYDROCHLORIDE
  18. TRAMADOL HCL [Concomitant]
     Active Substance: TRAMADOL HYDROCHLORIDE
  19. TAMSULOSIN HYDROCHLORIDE [Concomitant]
     Active Substance: TAMSULOSIN HYDROCHLORIDE

REACTIONS (2)
  - Disease progression [Unknown]
  - Headache [Not Recovered/Not Resolved]

NARRATIVE: CASE EVENT DATE: 20230901
